FAERS Safety Report 4777164-3 (Version None)
Quarter: 2005Q3

REPORT INFORMATION
  Report Type: 
  Country: None (occurrence: None)
  Receive Date: 20050923
  Receipt Date: 20050825
  Transmission Date: 20060218
  Serious: Yes (Other)
  Sender: FDA-Public Use
  Company Number: CH-ROCHE-417753

PATIENT
  Age: 47 Year
  Sex: Male

DRUGS (1)
  1. ROFERON-A [Suspect]
     Indication: LEUKAEMIA
     Route: 065

REACTIONS (1)
  - SPERMATOZOA PROGRESSIVE MOTILITY ABNORMAL [None]
